FAERS Safety Report 20691277 (Version 1)
Quarter: 2022Q2

REPORT INFORMATION
  Report Type: Spontaneous
  Country: JP (occurrence: JP)
  Receive Date: 20220408
  Receipt Date: 20220408
  Transmission Date: 20220721
  Serious: Yes (Other)
  Sender: FDA-Public Use
  Company Number: JP-MEITHEAL-2022MPLIT00037

PATIENT
  Age: 46 Year
  Sex: Female

DRUGS (3)
  1. DOCETAXEL [Suspect]
     Active Substance: DOCETAXEL
     Indication: Oesophageal squamous cell carcinoma
     Dosage: ON DAYS 1 AND 15
     Route: 065
  2. CISPLATIN [Suspect]
     Active Substance: CISPLATIN
     Indication: Oesophageal squamous cell carcinoma
     Dosage: ON DAYS 1 AND 15
     Route: 065
  3. FLUOROURACIL [Suspect]
     Active Substance: FLUOROURACIL
     Indication: Oesophageal squamous cell carcinoma
     Dosage: ON DAYS 1-5 AND 15-19
     Route: 065

REACTIONS (2)
  - Peritonitis [Recovering/Resolving]
  - Lymph node rupture [Recovering/Resolving]
